FAERS Safety Report 23271879 (Version 2)
Quarter: 2024Q1

REPORT INFORMATION
  Report Type: Spontaneous
  Country: FR (occurrence: FR)
  Receive Date: 20231207
  Receipt Date: 20240307
  Transmission Date: 20240410
  Serious: Yes (Other)
  Sender: FDA-Public Use
  Company Number: FR-BRISTOL-MYERS SQUIBB COMPANY-2023-175574

PATIENT
  Sex: Female

DRUGS (4)
  1. NIVOLUMAB [Suspect]
     Active Substance: NIVOLUMAB
     Indication: Renal cancer metastatic
     Dosage: EVERY 3 WEEKS, ROUTE OF ADMINISTRATION: BY INFUSION
     Dates: start: 202311
  2. NIVOLUMAB [Suspect]
     Active Substance: NIVOLUMAB
     Dosage: EVERY 3 WEEKS, ROUTE OF ADMINISTRATION: BY INFUSION
     Dates: start: 20231201
  3. IPILIMUMAB [Suspect]
     Active Substance: IPILIMUMAB
     Indication: Renal cancer metastatic
     Dosage: ROUTE OF ADMINISTRATION: BY INFUSION
     Dates: start: 202311
  4. IPILIMUMAB [Suspect]
     Active Substance: IPILIMUMAB
     Dosage: ROUTE OF ADMINISTRATION: BY INFUSION
     Dates: start: 20231201

REACTIONS (2)
  - Hypertension [Unknown]
  - Blood disorder [Unknown]

NARRATIVE: CASE EVENT DATE: 20231201
